FAERS Safety Report 11797415 (Version 1)
Quarter: 2015Q4

REPORT INFORMATION
  Report Type: Report from Study
  Country: FR (occurrence: FR)
  Receive Date: 20151203
  Receipt Date: 20151203
  Transmission Date: 20160305
  Serious: Yes (Death, Other)
  Sender: FDA-Public Use
  Company Number: FR-BAXTER-2015BAX064374

PATIENT

DRUGS (37)
  1. METHOTREXATE [Suspect]
     Active Substance: METHOTREXATE
     Dosage: DOSES ADAPTED FOR AGE, CONSOLIDATION THERAPY 2, 16, 31, 46 DAYS
     Route: 037
  2. VINCRISTINE [Suspect]
     Active Substance: VINCRISTINE
     Dosage: REINDUCTION PHASE 1, 8, 15 DAYS
     Route: 042
  3. METHOTREXATE [Suspect]
     Active Substance: METHOTREXATE
     Dosage: DOSES ADAPTED FOR AGE, 9 AND 15 DAYS
     Route: 037
  4. DOXORUBICIN [Suspect]
     Active Substance: DOXORUBICIN
     Indication: PRECURSOR T-LYMPHOBLASTIC LYMPHOMA/LEUKAEMIA
     Dosage: REINDUCTION PHASE 1, 8, 15 DAYS
     Route: 042
  5. METHOTREXATE [Suspect]
     Active Substance: METHOTREXATE
     Dosage: PULSE PHASE A WEEKS 2, 3, AND 4
     Route: 048
  6. DAUNORUBICIN [Suspect]
     Active Substance: DAUNORUBICIN
     Indication: PRECURSOR T-LYMPHOBLASTIC LYMPHOMA/LEUKAEMIA
     Dosage: INDUCTION PHASE, 15,22,29
     Route: 042
  7. ARACYTINE [Suspect]
     Active Substance: CYTARABINE
     Dosage: REINDUCTION PHASE 29, 30, 31, 32 AND 36, 37, 38, 39 DAYS
     Route: 042
  8. DEXAMETHASONE. [Suspect]
     Active Substance: DEXAMETHASONE
     Indication: PRECURSOR T-LYMPHOBLASTIC LYMPHOMA/LEUKAEMIA
     Dosage: REINDUCTION PHASE 1 TO 21 DAYS
     Route: 048
  9. METHOTREXATE [Suspect]
     Active Substance: METHOTREXATE
     Dosage: DOSES ADAPTED FOR AGE ON DAY 2, PULSE PHASEA
     Route: 037
  10. PREDNISONE. [Suspect]
     Active Substance: PREDNISONE
     Dosage: PULSE PHASE B 1 TO 5
     Route: 048
  11. 6-MERCAPTOPURINE [Suspect]
     Active Substance: MERCAPTOPURINE
     Indication: PRECURSOR T-LYMPHOBLASTIC LYMPHOMA/LEUKAEMIA
     Dosage: INTERPHASE 1 TO 22 DAYS
     Route: 048
  12. 6-MERCAPTOPURINE [Suspect]
     Active Substance: MERCAPTOPURINE
     Dosage: PULSE PHASE A 1 TO 30 DAYS
     Route: 048
  13. ENDOXAN 1000 MG, POUDRE POUR SOLUTIONINJECTABLE [Suspect]
     Active Substance: CYCLOPHOSPHAMIDE
     Indication: PRECURSOR T-LYMPHOBLASTIC LYMPHOMA/LEUKAEMIA
     Dosage: 1 GRAM /M2 ON DAY 8, INDUCTION PHASE
     Route: 042
  14. ENDOXAN 1000 MG, POUDRE POUR SOLUTIONINJECTABLE [Suspect]
     Active Substance: CYCLOPHOSPHAMIDE
     Dosage: 1 GRAM/M2, 1 AND 30 DAY, CONSOLIDATION PHASE
     Route: 042
  15. METHOTREXATE [Suspect]
     Active Substance: METHOTREXATE
     Dosage: 3 GRAM/M2 OVER 3 HOURS, INDUCTION PHASE, ON DAY 8
     Route: 042
  16. METHOTREXATE [Suspect]
     Active Substance: METHOTREXATE
     Dosage: 3 G/M? IV OVER 3 HR, CONSOLIDATION PHASE 1, 15, 30, 45 DAYS
     Route: 042
  17. METHOTREXATE [Suspect]
     Active Substance: METHOTREXATE
     Dosage: PULSE PHASE B ON WEEKS 2, 3, AND 4
     Route: 048
  18. VINCRISTINE [Suspect]
     Active Substance: VINCRISTINE
     Dosage: CONSOLIDATION PHASE, 15, 45 DAYS
     Route: 042
  19. ECOLI ASPARAGINASE [Suspect]
     Active Substance: ASPARAGINASE
     Indication: PRECURSOR T-LYMPHOBLASTIC LYMPHOMA/LEUKAEMIA
     Dosage: 10000 U/M2 ON 16, 18, 20, 23, 25, 27, 30, 32 DAYS
     Route: 042
  20. ECOLI ASPARAGINASE [Suspect]
     Active Substance: ASPARAGINASE
     Dosage: 25,000 U/M2 IV/IM, CONSOLIDATION PHASE 16, 23, 46, 53 DAYS
     Route: 042
  21. ECOLI ASPARAGINASE [Suspect]
     Active Substance: ASPARAGINASE
     Dosage: 25,000 U/M?, PULSE PHASE A ON DAY 2
     Route: 042
  22. ARACYTINE [Suspect]
     Active Substance: CYTARABINE
     Indication: PRECURSOR T-LYMPHOBLASTIC LYMPHOMA/LEUKAEMIA
     Dosage: CONSOLIDATION PHASE, 2 TO 5; 8 TO 11; 31 TO 34; 38 TO 41
     Route: 042
  23. PREDNISOLONE. [Suspect]
     Active Substance: PREDNISOLONE
     Indication: PRECURSOR T-LYMPHOBLASTIC LYMPHOMA/LEUKAEMIA
     Dosage: 1 TO 7 DAYS, PREPHASE
     Route: 042
  24. METHOTREXATE [Suspect]
     Active Substance: METHOTREXATE
     Dosage: 3 G/M2 OVER 3 H, INTERPHASE 1 AND 15
     Route: 042
  25. METHOTREXATE [Suspect]
     Active Substance: METHOTREXATE
     Dosage: DOSES ADAPTED FOR AGE, 1, 29 DAYS
     Route: 037
  26. PREDNISONE. [Suspect]
     Active Substance: PREDNISONE
     Indication: PRECURSOR T-LYMPHOBLASTIC LYMPHOMA/LEUKAEMIA
     Dosage: 8 TO 28 DAYS, INDUCTION PHASE
     Route: 042
  27. VINCRISTINE [Suspect]
     Active Substance: VINCRISTINE
     Dosage: PULSE PHASE A ON DAY 1
     Route: 042
  28. ENDOXAN 1000 MG, POUDRE POUR SOLUTIONINJECTABLE [Suspect]
     Active Substance: CYCLOPHOSPHAMIDE
     Dosage: REINDUCTION PHASE 1 GRAM/M2 ON 29 DAY
     Route: 042
  29. METHOTREXATE [Suspect]
     Active Substance: METHOTREXATE
     Dosage: DOSES ADAPTED FOR AGE, INTERPHASE 2, 16 DAYS
     Route: 037
  30. METHOTREXATE [Suspect]
     Active Substance: METHOTREXATE
     Dosage: MAINTAINENCE THERAPY ONCE A WEEK
     Route: 048
  31. VINCRISTINE [Suspect]
     Active Substance: VINCRISTINE
     Indication: PRECURSOR T-LYMPHOBLASTIC LYMPHOMA/LEUKAEMIA
     Dosage: 8, 15,22,29 DAYS, INDUCTION PHASE
     Route: 042
  32. 6-MERCAPTOPURINE [Suspect]
     Active Substance: MERCAPTOPURINE
     Dosage: 1 TO 30 PULSE PHASE B
     Route: 048
  33. 6-MERCAPTOPURINE [Suspect]
     Active Substance: MERCAPTOPURINE
     Dosage: MAINTAINENCE THERAPY EVERY DAY
     Route: 048
  34. METHOTREXATE [Suspect]
     Active Substance: METHOTREXATE
     Indication: PRECURSOR T-LYMPHOBLASTIC LYMPHOMA/LEUKAEMIA
     Dosage: DOSES ADAPTED FOR AGE, 2 OR 3, PREPHASE
     Route: 037
  35. METHOTREXATE [Suspect]
     Active Substance: METHOTREXATE
     Dosage: 3 G/M?OVER 3 HR, PULSE PHASE A ON DAY 1
     Route: 042
  36. ECOLI ASPARAGINASE [Suspect]
     Active Substance: ASPARAGINASE
     Dosage: 10,000 U/M?, REINDUCTION PHASE 16, 18, 20; 22, 24, 26 DAYS
     Route: 042
  37. ARACYTINE [Suspect]
     Active Substance: CYTARABINE
     Dosage: PULSE PHASE B 1, 2, 3, 4
     Route: 058

REACTIONS (2)
  - Neutropenia [Unknown]
  - Recurrent cancer [Fatal]
